FAERS Safety Report 21883240 (Version 1)
Quarter: 2023Q1

REPORT INFORMATION
  Report Type: Report from Study
  Country: US (occurrence: US)
  Receive Date: 20230119
  Receipt Date: 20230119
  Transmission Date: 20230417
  Serious: No
  Sender: FDA-Public Use
  Company Number: US-ABBVIE-4243112

PATIENT
  Sex: Male

DRUGS (1)
  1. HUMIRA [Suspect]
     Active Substance: ADALIMUMAB
     Indication: Ankylosing spondylitis
     Route: 058

REACTIONS (4)
  - Sluggishness [Unknown]
  - Musculoskeletal discomfort [Recovering/Resolving]
  - Musculoskeletal stiffness [Recovering/Resolving]
  - Loss of personal independence in daily activities [Unknown]
